FAERS Safety Report 10947895 (Version 1)
Quarter: 2015Q1

REPORT INFORMATION
  Report Type: Spontaneous
  Country: DE (occurrence: DE)
  Receive Date: 20150324
  Receipt Date: 20150324
  Transmission Date: 20150721
  Serious: Yes (Hospitalization)
  Sender: FDA-Public Use
  Company Number: DE-UCBSA-2015008968

PATIENT
  Age: 30 Year
  Sex: Female

DRUGS (1)
  1. CIMZIA [Suspect]
     Active Substance: CERTOLIZUMAB PEGOL
     Indication: PSORIATIC ARTHROPATHY
     Dosage: 3 INJECTIONS OF CIMZIA TAKEN (THIRD INJECTION)

REACTIONS (4)
  - Headache [Unknown]
  - Swelling face [Unknown]
  - Hypersensitivity [Unknown]
  - Hypertension [Unknown]
